FAERS Safety Report 5331494-5 (Version None)
Quarter: 2007Q2

REPORT INFORMATION
  Report Type: 
  Country: None (occurrence: None)
  Receive Date: 20070522
  Receipt Date: 20070514
  Transmission Date: 20071010
  Serious: Yes (Hospitalization)
  Sender: FDA-Public Use
  Company Number: US-ELI_LILLY_AND_COMPANY-US200701005230

PATIENT
  Age: 59 Year
  Sex: Female
  Weight: 65.759 kg

DRUGS (12)
  1. BYETTA [Suspect]
     Indication: DIABETES MELLITUS NON-INSULIN-DEPENDENT
     Dosage: 5 UG, 2/D
     Route: 058
     Dates: start: 20060801, end: 20060831
  2. BYETTA [Suspect]
     Dosage: 10 UG, 2/D
     Route: 058
     Dates: start: 20060901
  3. METFORMIN HCL [Concomitant]
  4. LISINOPRIL [Concomitant]
     Dates: end: 20061001
  5. DYAZIDE [Concomitant]
     Dates: end: 20061001
  6. ZOLOFT [Concomitant]
     Dosage: 100 UNK, DAILY (1/D)
  7. FLOVENT [Concomitant]
     Dosage: UNK, 2/D
     Route: 055
  8. ADVAIR DISKUS 100/50 [Concomitant]
     Dosage: UNK, 2/D
  9. NITROGLYCERIN [Concomitant]
     Dosage: UNK, AS NEEDED
  10. SINGULAIR [Concomitant]
     Dosage: 10 UNK, DAILY (1/D)
  11. PRILOSEC [Concomitant]
     Dosage: 20 UNK, DAILY (1/D)
  12. REGLAN [Concomitant]
     Dosage: 10 UNK, DAILY (1/D)

REACTIONS (10)
  - ADRENALITIS [None]
  - BLOOD GLUCOSE INCREASED [None]
  - DECREASED APPETITE [None]
  - FALL [None]
  - HYPOTENSION [None]
  - NAUSEA [None]
  - RENAL FAILURE [None]
  - SYNCOPE [None]
  - VOMITING [None]
  - WEIGHT DECREASED [None]
